FAERS Safety Report 6055151-5 (Version None)
Quarter: 2009Q1

REPORT INFORMATION
  Report Type: 
  Country: None (occurrence: None)
  Receive Date: 20090128
  Receipt Date: 20090120
  Transmission Date: 20090719
  Serious: Yes (Other)
  Sender: FDA-Public Use
  Company Number: US-JNJFOC-20090105793

PATIENT
  Age: 61 Year
  Sex: Female
  Weight: 58.06 kg

DRUGS (5)
  1. EXTRA STRENGTH TYLENOL [Suspect]
     Route: 048
  2. EXTRA STRENGTH TYLENOL [Suspect]
     Indication: BACK PAIN
     Route: 048
  3. LEVETIRACETAM [Concomitant]
     Indication: CONVULSION
  4. LORAZEPAM [Concomitant]
     Indication: CONVULSION
  5. DEPAKOTE [Concomitant]
     Indication: CONVULSION

REACTIONS (1)
  - CONVULSION [None]
